FAERS Safety Report 8862027 (Version 1)
Quarter: 2012Q4

REPORT INFORMATION
  Report Type: 
  Country: US (occurrence: US)
  Receive Date: 20121025
  Receipt Date: 20121025
  Transmission Date: 20130627
  Serious: Yes (Hospitalization)
  Sender: FDA-Public Use
  Company Number: US-ROCHE-1142116

PATIENT
  Sex: Female

DRUGS (3)
  1. PEGASYS [Suspect]
     Indication: HEPATITIS C
     Route: 065
     Dates: start: 201204, end: 201206
  2. RIBAVIRIN [Suspect]
     Indication: HEPATITIS C
     Dosage: Divided doses 400/600
     Route: 065
     Dates: start: 201204, end: 201206
  3. TELAPREVIR [Suspect]
     Indication: HEPATITIS C
     Route: 065
     Dates: start: 201204, end: 201206

REACTIONS (11)
  - Cellulitis [Unknown]
  - Hypersensitivity [Unknown]
  - Stevens-Johnson syndrome [Unknown]
  - Rash [Unknown]
  - Skin exfoliation [Unknown]
  - Alopecia [Unknown]
  - Tachycardia [Unknown]
  - Anaemia [Unknown]
  - Hypothyroidism [Unknown]
  - Pain in extremity [Unknown]
  - Crying [Unknown]
